FAERS Safety Report 17858415 (Version 2)
Quarter: 2020Q2

REPORT INFORMATION
  Report Type: Report from Study
  Country: None (occurrence: US)
  Receive Date: 20200604
  Receipt Date: 20200605
  Transmission Date: 20200714
  Serious: No
  Sender: FDA-Public Use
  Company Number: US-US WORLDMEDS, LLC-USW201908-001480

PATIENT
  Age: 73 Year
  Sex: Male

DRUGS (14)
  1. RIVASTIGMINE. [Concomitant]
     Active Substance: RIVASTIGMINE
  2. MYRBETRIQ [Concomitant]
     Active Substance: MIRABEGRON
  3. CARBIDOPA/LEVODOPA [Concomitant]
     Active Substance: CARBIDOPA\LEVODOPA
  4. ENTACAPONE. [Concomitant]
     Active Substance: ENTACAPONE
  5. RAPAFLOW [Concomitant]
  6. LIPITOR [Concomitant]
     Active Substance: ATORVASTATIN CALCIUM
  7. APOKYN [Suspect]
     Active Substance: APOMORPHINE HYDROCHLORIDE
     Indication: PARKINSON^S DISEASE
     Route: 058
     Dates: start: 20190805, end: 20190809
  8. PRAMIPEXOL [Concomitant]
     Active Substance: PRAMIPEXOLE
  9. ENTACAPONE. [Concomitant]
     Active Substance: ENTACAPONE
  10. CIALIS [Concomitant]
     Active Substance: TADALAFIL
  11. PRAMIPEXOL [Concomitant]
     Active Substance: PRAMIPEXOLE
     Dosage: 2.25 MG ER ONCE DAILY
  12. VITAMIN D [Concomitant]
     Active Substance: VITAMIN D NOS
  13. APOKYN [Suspect]
     Active Substance: APOMORPHINE HYDROCHLORIDE
     Dosage: PROBABLY 4 ML
  14. CARBIDOPA/LEVODOPA [Concomitant]
     Active Substance: CARBIDOPA\LEVODOPA
     Dosage: 25-100MG

REACTIONS (7)
  - Pain in extremity [Recovered/Resolved]
  - Anxiety [Recovered/Resolved]
  - Tremor [Recovered/Resolved]
  - Insomnia [Recovered/Resolved]
  - Somnolence [Recovered/Resolved]
  - Therapeutic response shortened [Unknown]
  - Nocturia [Recovered/Resolved]

NARRATIVE: CASE EVENT DATE: 20190805
